FAERS Safety Report 22588461 (Version 3)
Quarter: 2024Q1

REPORT INFORMATION
  Report Type: Spontaneous
  Country: US (occurrence: US)
  Receive Date: 20230612
  Receipt Date: 20240206
  Transmission Date: 20240409
  Serious: No
  Sender: FDA-Public Use
  Company Number: US-BRISTOL-MYERS SQUIBB COMPANY-2023-082157

PATIENT
  Age: 67 Year
  Sex: Male

DRUGS (2)
  1. REVLIMID [Suspect]
     Active Substance: LENALIDOMIDE
     Indication: Product used for unknown indication
     Route: 048
     Dates: start: 202206
  2. REVLIMID [Suspect]
     Active Substance: LENALIDOMIDE
     Dosage: QD FOR 21 DAYS ON THEN 7 DAYS OFF
     Route: 048

REACTIONS (2)
  - Treatment noncompliance [Unknown]
  - Product dose omission issue [Unknown]
